FAERS Safety Report 5645559-1 (Version None)
Quarter: 2008Q1

REPORT INFORMATION
  Report Type: 
  Country: None (occurrence: None)
  Receive Date: 20080229
  Receipt Date: 20080219
  Transmission Date: 20080703
  Serious: Yes (Life-Threatening)
  Sender: FDA-Public Use
  Company Number: ES-BAYER-ES-2007-023652

PATIENT
  Age: 53 Year
  Sex: Female
  Weight: 70 kg

DRUGS (1)
  1. ULTRAVIST 300 [Suspect]
     Route: 065
     Dates: start: 20070319, end: 20070319

REACTIONS (1)
  - ANAPHYLACTIC SHOCK [None]
